FAERS Safety Report 10663972 (Version 1)
Quarter: 2014Q4

REPORT INFORMATION
  Report Type: Spontaneous
  Country: US (occurrence: None)
  Receive Date: 20141218
  Receipt Date: 20141218
  Transmission Date: 20150529
  Serious: Yes (Other)
  Sender: FDA-Public Use
  Company Number: None

PATIENT
  Age: 65 Year
  Sex: Female
  Weight: 90.72 kg

DRUGS (1)
  1. TROSPIUM CHLORIDE. [Suspect]
     Active Substance: TROSPIUM CHLORIDE
     Indication: HYPERTONIC BLADDER
     Dosage: 2 PILLS TWICE DAILY
     Route: 048

REACTIONS (5)
  - Constipation [None]
  - Urine output decreased [None]
  - Bladder disorder [None]
  - Myalgia [None]
  - Abdominal pain upper [None]

NARRATIVE: CASE EVENT DATE: 20141217
